FAERS Safety Report 5247456-2 (Version None)
Quarter: 2007Q1

REPORT INFORMATION
  Report Type: 
  Country: None (occurrence: None)
  Receive Date: 20070227
  Receipt Date: 20070222
  Transmission Date: 20070707
  Serious: Yes (Death)
  Sender: FDA-Public Use
  Company Number: US-BRISTOL-MYERS SQUIBB COMPANY-13645791

PATIENT
  Age: 61 Year
  Sex: Male

DRUGS (13)
  1. SINEMET [Suspect]
     Indication: PARKINSON'S DISEASE
     Route: 048
     Dates: start: 20051007, end: 20060505
  2. IMDUR [Concomitant]
  3. LAMICTAL [Concomitant]
  4. LASIX [Concomitant]
  5. INSULIN [Concomitant]
  6. POTASSIUM ACETATE [Concomitant]
  7. PROTONIX [Concomitant]
  8. TOPROL-XL [Concomitant]
  9. ULTRAM [Concomitant]
  10. IRON SULFATETHIAMIN COMPOUND TAB [Concomitant]
  11. WELLBUTRIN [Concomitant]
  12. COMTAN [Concomitant]
  13. TRAZODONE HCL [Concomitant]

REACTIONS (1)
  - DEATH [None]
